FAERS Safety Report 5625493-3 (Version None)
Quarter: 2008Q1

REPORT INFORMATION
  Report Type: 
  Country: None (occurrence: None)
  Receive Date: 20080208
  Receipt Date: 20080129
  Transmission Date: 20080703
  Serious: Yes (Other)
  Sender: FDA-Public Use
  Company Number: 2008002662

PATIENT
  Age: 58 Year
  Sex: Female

DRUGS (2)
  1. ROGAINE [Suspect]
     Dosage: TOPICAL
     Route: 061
     Dates: start: 20080101, end: 20080101
  2. RAMIPRIL [Concomitant]

REACTIONS (2)
  - ARRHYTHMIA [None]
  - HYPERTENSION [None]
